FAERS Safety Report 17676816 (Version 1)
Quarter: 2020Q2

REPORT INFORMATION
  Report Type: Spontaneous
  Country: FR (occurrence: FR)
  Receive Date: 20200416
  Receipt Date: 20200416
  Transmission Date: 20200714
  Serious: Yes (Hospitalization)
  Sender: FDA-Public Use
  Company Number: FR-MYLANLABS-2020M1037972

PATIENT
  Age: 73 Year
  Sex: Female
  Weight: 59 kg

DRUGS (26)
  1. COUMADINE [Concomitant]
     Active Substance: WARFARIN SODIUM
     Dosage: 4 MILLIGRAM, QD
     Route: 048
     Dates: start: 20200128, end: 20200221
  2. DIFFU K [Concomitant]
     Active Substance: POTASSIUM CHLORIDE
     Dosage: 3600 MILLIGRAM, QD
     Route: 048
     Dates: end: 20200120
  3. FUROSEMIDE ARROW [Concomitant]
     Active Substance: FUROSEMIDE
     Dosage: 80 MILLIGRAM, QD
     Route: 048
     Dates: end: 20200217
  4. KARDEGIC [Concomitant]
     Active Substance: ASPIRIN DL-LYSINE
     Dosage: 75 MILLIGRAM, QD
     Route: 048
     Dates: end: 20200212
  5. MORPHINE RENAUDIN [Concomitant]
     Active Substance: MORPHINE
     Dosage: 12 MILLIGRAM, QD
     Route: 042
     Dates: start: 20200122, end: 20200123
  6. ALPRAZOLAM EG [Concomitant]
     Active Substance: ALPRAZOLAM
     Dosage: 0.25 MILLIGRAM, QD
     Route: 048
     Dates: start: 20200202, end: 20200227
  7. PIPERACILLIN AND TAZOBACTAM [Suspect]
     Active Substance: PIPERACILLIN SODIUM\TAZOBACTAM SODIUM
     Indication: INFECTION
     Dosage: 4 DOSAGE FORM, QD
     Route: 042
     Dates: start: 20200103, end: 20200105
  8. ABASAGLAR [Concomitant]
     Active Substance: INSULIN GLARGINE
     Dosage: UNK
     Route: 058
  9. LOVENOX [Concomitant]
     Active Substance: ENOXAPARIN SODIUM
     Dosage: 4000 INTERNATIONAL UNIT, QD
     Route: 058
     Dates: end: 20200107
  10. PERINDOPRIL ARROW [Suspect]
     Active Substance: PERINDOPRIL
     Indication: HYPERTENSION
     Dosage: 4 MILLIGRAM, QD
     Route: 048
     Dates: start: 20200103, end: 20200105
  11. LANSOPRAZOLE MYLAN [Concomitant]
     Active Substance: LANSOPRAZOLE
     Dosage: 30 MILLIGRAM, QD
     Route: 048
     Dates: end: 20200224
  12. IMOVANE [Concomitant]
     Active Substance: ZOPICLONE
     Dosage: 0.5 DOSAGE FORM, QD
     Route: 048
     Dates: start: 20200113, end: 20200130
  13. HYDROXYZINE ARROW [Concomitant]
     Active Substance: HYDROXYZINE HYDROCHLORIDE
     Dosage: 25 MILLIGRAM, QD
     Route: 048
     Dates: end: 20200113
  14. NEFOPAM MEDISOL [Concomitant]
     Active Substance: NEFOPAM HYDROCHLORIDE
     Dosage: 80 MILLIGRAM, QD
     Route: 048
     Dates: end: 20200129
  15. MEROPENEM PANPHARMA [Suspect]
     Active Substance: MEROPENEM
     Indication: INFECTION
     Dosage: 4000 MILLIGRAM, QD
     Route: 042
     Dates: start: 20200107, end: 20200127
  16. CETIRIZINE [Concomitant]
     Active Substance: CETIRIZINE HYDROCHLORIDE
     Dosage: 10 MILLIGRAM, QD
     Route: 048
     Dates: start: 20200116, end: 20200227
  17. AMLODIPINE [Concomitant]
     Active Substance: AMLODIPINE BESYLATE
     Dosage: 10 MILLIGRAM, QD
     Route: 048
     Dates: end: 20200130
  18. CALCIPARINE [Concomitant]
     Active Substance: HEPARIN CALCIUM
     Dosage: 0.9 MILLILITER, QD
     Route: 058
     Dates: start: 20200108, end: 20200201
  19. VANCOMYCINE MYLAN 1 G, POUDRE POUR SOLUTION POUR PERFUSION [Suspect]
     Active Substance: VANCOMYCIN
     Indication: INFECTION
     Dosage: 2000 MILLIGRAM, QD
     Route: 042
     Dates: start: 20200103, end: 20200107
  20. ZAVICEFTA [Suspect]
     Active Substance: AVIBACTAM SODIUM\CEFTAZIDIME
     Indication: INFECTION
     Dosage: 3 DOSAGE FORM, QD
     Route: 042
     Dates: start: 20200127, end: 20200223
  21. ATORVASTATINE ARROW [Concomitant]
     Active Substance: ATORVASTATIN
     Dosage: 40 MILLIGRAM, QD
     Route: 048
     Dates: end: 20200227
  22. ACIDE FOLIQUE [Concomitant]
     Active Substance: FOLIC ACID
     Dosage: 5 MILLIGRAM, QD
     Route: 048
     Dates: end: 20200227
  23. AMIKACINE MYLAN 500 MG, POUDRE POUR SOLUTION INJECTABLE [Suspect]
     Active Substance: AMIKACIN
     Indication: INFECTION
     Dosage: 500 MILLIGRAM, QD
     Route: 042
     Dates: start: 20200105, end: 20200107
  24. LINEZOLIDE ARROW [Suspect]
     Active Substance: LINEZOLID
     Indication: INFECTION
     Dosage: 1200 MILLIGRAM, QD
     Route: 048
     Dates: start: 20200217, end: 20200224
  25. HUMALOG [Concomitant]
     Active Substance: INSULIN LISPRO
     Dosage: UNK
     Route: 058
  26. FUMAFER [Concomitant]
     Active Substance: FERROUS FUMARATE
     Dosage: 3 DOSAGE FORM, QD
     Route: 048
     Dates: end: 20200227

REACTIONS (2)
  - Condition aggravated [Not Recovered/Not Resolved]
  - Renal failure [Not Recovered/Not Resolved]

NARRATIVE: CASE EVENT DATE: 20200106
